FAERS Safety Report 4553772-X (Version None)
Quarter: 2005Q1

REPORT INFORMATION
  Report Type: 
  Country: None (occurrence: None)
  Receive Date: 20050113
  Receipt Date: 20050113
  Transmission Date: 20050727
  Serious: Yes (Other)
  Sender: FDA-Public Use
  Company Number: None

PATIENT
  Sex: Female
  Weight: 88.905 kg

DRUGS (5)
  1. CORRECTOL [Suspect]
     Indication: CONSTIPATION
     Dosage: ORAL
     Route: 048
  2. EX-LAX TABLETS [Suspect]
     Indication: CONSTIPATION
     Dosage: ORAL
     Route: 048
  3. FLEET PHOSPHO-SODA  ORALS [Suspect]
     Indication: CONSTIPATION
     Dosage: ORAL
     Route: 048
  4. DULCOLAX [Suspect]
     Indication: CONSTIPATION
     Dosage: ORAL
     Route: 048
  5. SENOKOT [Suspect]
     Indication: CONSTIPATION
     Dosage: ORAL
     Route: 048

REACTIONS (4)
  - CONSTIPATION [None]
  - DRUG DEPENDENCE [None]
  - ELECTROLYTE IMBALANCE [None]
  - FAECALOMA [None]
